FAERS Safety Report 6707197-9 (Version None)
Quarter: 2010Q2

REPORT INFORMATION
  Report Type: 
  Country: None (occurrence: None)
  Receive Date: 20100503
  Receipt Date: 20090722
  Transmission Date: 20101027
  Serious: No
  Sender: FDA-Public Use
  Company Number: US-ASTRAZENECA-2003UW09892

PATIENT
  Age: 62 Year
  Sex: Female
  Weight: 99.8 kg

DRUGS (12)
  1. NEXIUM [Suspect]
     Indication: GASTROOESOPHAGEAL REFLUX DISEASE
     Route: 048
     Dates: start: 20030801
  2. NEXIUM [Suspect]
     Indication: HIATUS HERNIA
     Route: 048
     Dates: start: 20030801
  3. NEXIUM [Suspect]
     Indication: BARRETT'S OESOPHAGUS
     Route: 048
     Dates: start: 20030801
  4. NEXIUM [Suspect]
     Route: 048
     Dates: start: 20030601, end: 20030801
  5. NEXIUM [Suspect]
     Route: 048
     Dates: start: 20030601, end: 20030801
  6. NEXIUM [Suspect]
     Route: 048
     Dates: start: 20030601, end: 20030801
  7. NEXIUM [Suspect]
     Route: 048
     Dates: start: 20090101
  8. NEXIUM [Suspect]
     Route: 048
     Dates: start: 20090101
  9. NEXIUM [Suspect]
     Route: 048
     Dates: start: 20090101
  10. LEXAPRO [Concomitant]
  11. URINARY INCONTINENCE MEDICATION [Concomitant]
  12. ALLERGY MEDICATION [Concomitant]

REACTIONS (3)
  - DIAPHRAGMATIC DISORDER [None]
  - DRUG INEFFECTIVE [None]
  - GALLBLADDER DISORDER [None]
